FAERS Safety Report 4445036-X (Version None)
Quarter: 2004Q3

REPORT INFORMATION
  Report Type: 
  Country: None (occurrence: None)
  Receive Date: 20040908
  Receipt Date: 20040908
  Transmission Date: 20050211
  Serious: No
  Sender: FDA-Public Use
  Company Number: None

PATIENT
  Age: 57 Year
  Sex: Male
  Weight: 144 kg

DRUGS (1)
  1. AMIODARONE HCL [Suspect]
     Indication: ATRIAL FIBRILLATION
     Dosage: DRIP - 0.5 MG/MIN
     Route: 042
     Dates: start: 20040707, end: 20040708

REACTIONS (3)
  - INFUSION SITE ERYTHEMA [None]
  - INFUSION SITE SWELLING [None]
  - INJECTION SITE EXTRAVASATION [None]
